FAERS Safety Report 7398785-8 (Version None)
Quarter: 2011Q2

REPORT INFORMATION
  Report Type: 
  Country: None (occurrence: None)
  Receive Date: 20110401
  Receipt Date: 20110401
  Transmission Date: 20111010
  Serious: Yes (Hospitalization)
  Sender: FDA-Public Use
  Company Number: None

PATIENT
  Sex: Female
  Weight: 32 kg

DRUGS (5)
  1. CYTARABINE [Suspect]
     Dosage: 1420 MG
     Dates: end: 20110111
  2. VINCRISTINE SULFATE [Suspect]
     Dosage: 7 MG
  3. METHOTREXATE [Suspect]
     Dosage: 48 MG
  4. CYCLOPHOSPHAMIDE [Suspect]
     Dosage: 2380 MG
     Dates: end: 20101213
  5. ONCASPAR [Suspect]
     Dosage: 5800 MG
     Dates: end: 20110114

REACTIONS (1)
  - DEEP VEIN THROMBOSIS [None]
